FAERS Safety Report 23814355 (Version 1)
Quarter: 2024Q2

REPORT INFORMATION
  Report Type: Spontaneous
  Country: US (occurrence: US)
  Receive Date: 20240503
  Receipt Date: 20240503
  Transmission Date: 20240716
  Serious: Yes (Other)
  Sender: FDA-Public Use
  Company Number: US-BRISTOL-MYERS SQUIBB COMPANY-2024-067176

PATIENT
  Age: 82 Year
  Sex: Female

DRUGS (11)
  1. REVLIMID [Suspect]
     Active Substance: LENALIDOMIDE
     Indication: Plasma cell myeloma
     Dosage: FREQ: TAKE 1 CAPSULE (10 MG) BY MOUTH ONCE DAILY FOR 21 DAYS ON, 7 DAYS OFF
     Route: 048
     Dates: start: 20231213
  2. ACETAMINOPHEN [Concomitant]
     Active Substance: ACETAMINOPHEN
     Dosage: SUP
  3. ALBUTEROL SULFATE [Concomitant]
     Active Substance: ALBUTEROL SULFATE
     Dosage: AER
  4. ASPIRIN [Concomitant]
     Active Substance: ASPIRIN
     Dosage: LOW
  5. BREZTRI [Concomitant]
     Active Substance: BUDESONIDE\FORMOTEROL\GLYCOPYRROLATE
     Dosage: AER
  6. DEXAMETHASONE [Concomitant]
     Active Substance: DEXAMETHASONE
  7. DRONABINOL [Concomitant]
     Active Substance: DRONABINOL
  8. FLUTICASONE [Concomitant]
     Active Substance: FLUTICASONE
     Dosage: SPR
  9. LENALIDOMIDE [Concomitant]
     Active Substance: LENALIDOMIDE
  10. LEVOCETIRIZINE DIHYDROCHLORIDE [Concomitant]
     Active Substance: LEVOCETIRIZINE DIHYDROCHLORIDE
  11. LORATADINE [Concomitant]
     Active Substance: LORATADINE

REACTIONS (2)
  - Anaemia [Unknown]
  - Chronic kidney disease [Unknown]
